FAERS Safety Report 21356157 (Version 2)
Quarter: 2022Q4

REPORT INFORMATION
  Report Type: Spontaneous
  Country: US (occurrence: US)
  Receive Date: 20220920
  Receipt Date: 20221010
  Transmission Date: 20230112
  Serious: No
  Sender: FDA-Public Use
  Company Number: US-PFIZER INC-PV202200066605

PATIENT
  Age: 55 Year
  Sex: Female

DRUGS (1)
  1. IBRANCE [Suspect]
     Active Substance: PALBOCICLIB
     Dosage: UNK

REACTIONS (9)
  - Fatigue [Unknown]
  - Pruritus [Unknown]
  - Chills [Unknown]
  - Full blood count decreased [Unknown]
  - Feeling cold [Unknown]
  - Oesophagitis [Unknown]
  - Oesophageal irritation [Unknown]
  - Oesophageal mass [Unknown]
  - Drug interaction [Unknown]

NARRATIVE: CASE EVENT DATE: 20221006
